FAERS Safety Report 6981620-7 (Version None)
Quarter: 2010Q3

REPORT INFORMATION
  Report Type: 
  Country: None (occurrence: None)
  Receive Date: 20100914
  Receipt Date: 20090812
  Transmission Date: 20110219
  Serious: No
  Sender: FDA-Public Use
  Company Number: US-PFIZER INC-2009255841

PATIENT
  Age: 44 Year
  Sex: Male
  Weight: 68.03 kg

DRUGS (2)
  1. LYRICA [Suspect]
     Indication: SPINAL OPERATION
     Dosage: UNK
  2. PERCOCET [Concomitant]
     Dosage: UNK

REACTIONS (1)
  - VISION BLURRED [None]
